FAERS Safety Report 6386897-7 (Version None)
Quarter: 2009Q4

REPORT INFORMATION
  Report Type: 
  Country: None (occurrence: None)
  Receive Date: 20091002
  Receipt Date: 20090921
  Transmission Date: 20100525
  Serious: Yes (Other)
  Sender: FDA-Public Use
  Company Number: US-PFIZER INC-2009210625

PATIENT
  Sex: Male
  Weight: 72.574 kg

DRUGS (2)
  1. CHANTIX [Suspect]
     Dosage: 1 MG, 2X/DAY
     Dates: start: 20090101, end: 20090101
  2. CHANTIX [Suspect]
     Route: 048
     Dates: start: 20090801, end: 20090901

REACTIONS (4)
  - DISORIENTATION [None]
  - LOSS OF CONSCIOUSNESS [None]
  - MOOD ALTERED [None]
  - PERSONALITY CHANGE [None]
